FAERS Safety Report 7641853-3 (Version None)
Quarter: 2011Q3

REPORT INFORMATION
  Report Type: 
  Country: None (occurrence: None)
  Receive Date: 20110728
  Receipt Date: 20110726
  Transmission Date: 20111222
  Serious: Yes (Hospitalization)
  Sender: FDA-Public Use
  Company Number: SE-ROCHE-790232

PATIENT

DRUGS (1)
  1. BEVACIZUMAB [Suspect]
     Dosage: DATE OF LAST DOSE: 31 MAY 2011
     Route: 065
     Dates: start: 20110510

REACTIONS (3)
  - CONFUSIONAL STATE [None]
  - VERTIGO [None]
  - HEMIPARESIS [None]
